FAERS Safety Report 4374500-7 (Version None)
Quarter: 2004Q2

REPORT INFORMATION
  Report Type: 
  Country: None (occurrence: None)
  Receive Date: 20040603
  Receipt Date: 20040514
  Transmission Date: 20050107
  Serious: Yes (Other)
  Sender: FDA-Public Use
  Company Number: EWC040539309

PATIENT
  Age: 48 Year
  Sex: Male
  Weight: 70 kg

DRUGS (1)
  1. CIALIS [Suspect]
     Indication: ERECTILE DYSFUNCTION
     Dosage: 20 MG AS NEEDED
     Dates: start: 20031101, end: 20040301

REACTIONS (6)
  - DERMATITIS EXFOLIATIVE [None]
  - DISEASE RECURRENCE [None]
  - ERYTHEMA [None]
  - PSORIASIS [None]
  - RASH MACULAR [None]
  - TREATMENT NONCOMPLIANCE [None]
